FAERS Safety Report 8193112-0 (Version None)
Quarter: 2012Q1

REPORT INFORMATION
  Report Type: 
  Country: None (occurrence: None)
  Receive Date: 20120308
  Receipt Date: 20120308
  Transmission Date: 20120608
  Serious: No
  Sender: FDA-Public Use
  Company Number: None

PATIENT
  Sex: Female

DRUGS (1)
  1. ENBREL [Suspect]
     Indication: PSORIASIS
     Dosage: 50.0 MG
     Route: 058
     Dates: start: 20120101, end: 20120131

REACTIONS (5)
  - DIARRHOEA [None]
  - MALAISE [None]
  - VOMITING [None]
  - HEADACHE [None]
  - BLOOD PRESSURE INCREASED [None]
